FAERS Safety Report 6646092-0 (Version None)
Quarter: 2010Q1

REPORT INFORMATION
  Report Type: 
  Country: None (occurrence: None)
  Receive Date: 20100322
  Receipt Date: 20100322
  Transmission Date: 20100710
  Serious: Yes (Disabling)
  Sender: FDA-Public Use
  Company Number: None

PATIENT
  Age: 83 Year
  Sex: Female
  Weight: 52.6173 kg

DRUGS (2)
  1. FLAGYL [Suspect]
     Indication: BACTERIAL INFECTION
     Dosage: 1 DAILY DAILY ORAL
     Route: 048
     Dates: start: 20091020, end: 20091223
  2. FLAGYL [Suspect]
     Indication: CLOSTRIDIAL INFECTION
     Dosage: 1 DAILY DAILY ORAL
     Route: 048
     Dates: start: 20091020, end: 20091223

REACTIONS (6)
  - FEELING ABNORMAL [None]
  - GAIT DISTURBANCE [None]
  - HYPOAESTHESIA [None]
  - PAIN IN EXTREMITY [None]
  - PARAESTHESIA [None]
  - SENSORY LOSS [None]
